FAERS Safety Report 14554377 (Version 1)
Quarter: 2018Q1

REPORT INFORMATION
  Report Type: Spontaneous
  Country: US (occurrence: US)
  Receive Date: 20180217
  Receipt Date: 20180217
  Transmission Date: 20180509
  Serious: No
  Sender: FDA-Public Use
  Company Number: None

PATIENT
  Sex: Male
  Weight: 74.25 kg

DRUGS (4)
  1. CLOPIDOGREL [Concomitant]
     Active Substance: CLOPIDOGREL BISULFATE
  2. WARFARIN [Concomitant]
     Active Substance: WARFARIN
  3. CARVEDILOL. [Concomitant]
     Active Substance: CARVEDILOL
  4. LISINOPRIL. [Suspect]
     Active Substance: LISINOPRIL
     Indication: AORTIC STENOSIS
     Dosage: ?          QUANTITY:135 TABLET(S);?
     Route: 048
     Dates: start: 20180121, end: 20180209

REACTIONS (7)
  - Vision blurred [None]
  - Product substitution issue [None]
  - Chest discomfort [None]
  - Fatigue [None]
  - Dizziness [None]
  - Hypotension [None]
  - Limb discomfort [None]

NARRATIVE: CASE EVENT DATE: 20180121
